FAERS Safety Report 10185214 (Version 1)
Quarter: 2014Q2

REPORT INFORMATION
  Report Type: Spontaneous
  Country: FR (occurrence: FR)
  Receive Date: 20140521
  Receipt Date: 20140521
  Transmission Date: 20141212
  Serious: Yes (Other)
  Sender: FDA-Public Use
  Company Number: FR-PFIZER INC-2014134164

PATIENT
  Age: 8 Day
  Sex: Male
  Weight: 3.44 kg

DRUGS (3)
  1. DILANTIN [Suspect]
     Dosage: 14 MG, 2X/DAY
     Route: 042
     Dates: start: 20140227, end: 20140304
  2. EPANUTIN [Suspect]
     Dosage: UNK
     Route: 048
     Dates: start: 20140304, end: 20140306
  3. GARDENAL [Concomitant]
     Dosage: UNK
     Dates: start: 20140226, end: 20140228

REACTIONS (4)
  - Overdose [Recovered/Resolved]
  - Anticonvulsant drug level increased [Recovered/Resolved]
  - Nystagmus [Recovered/Resolved]
  - Somnolence [Recovered/Resolved]
